FAERS Safety Report 8711088 (Version 5)
Quarter: 2014Q3

REPORT INFORMATION
  Report Type: Report from Study
  Country: GB (occurrence: GB)
  Receive Date: 20120807
  Receipt Date: 20140815
  Transmission Date: 20150326
  Serious: Yes (Life-Threatening, Hospitalization, Congenital Anomaly, Other)
  Sender: FDA-Public Use
  Company Number: GB-AMGEN-GBRNI2012047501

PATIENT
  Age: 64 Year
  Sex: Male
  Weight: 83.6 kg

DRUGS (20)
  1. DIPROBASE [Concomitant]
     Active Substance: CHLOROCRESOL
     Dosage: UNK UNK, PRN
     Dates: start: 20041201
  2. ASPIRIN. [Concomitant]
     Active Substance: ASPIRIN
     Dosage: 75 MG, UNK
     Dates: start: 20100629, end: 20120625
  3. MULTIVITAMIN [Concomitant]
     Active Substance: VITAMINS
     Dosage: UNK
     Dates: start: 20100629
  4. PAREGORIC [Concomitant]
     Active Substance: MORPHINE
     Dosage: 4 MG, UNK
     Dates: start: 20100823
  5. THIAMINE [Concomitant]
     Active Substance: THIAMINE
     Dosage: 100 MG, UNK
     Dates: start: 20110629
  6. PERINDOPRIL [Concomitant]
     Active Substance: PERINDOPRIL
     Dosage: 4 MG, UNK
     Dates: start: 20100823, end: 20120623
  7. DARBEPOETIN ALFA [Suspect]
     Active Substance: DARBEPOETIN ALFA
     Indication: NEPHROGENIC ANAEMIA
     Dosage: 60 MUG, QWK
     Route: 058
     Dates: start: 20111229
  8. BISOPROLOL [Concomitant]
     Active Substance: BISOPROLOL
     Dosage: 10 MG, UNK
     Dates: start: 20101201
  9. LORAZEPAM. [Concomitant]
     Active Substance: LORAZEPAM
     Dosage: 1 MG, UNK
     Dates: start: 20120227, end: 20120628
  10. DARBEPOETIN ALFA [Suspect]
     Active Substance: DARBEPOETIN ALFA
     Route: 058
  11. NIACIN. [Concomitant]
     Active Substance: NIACIN
     Dosage: UNK
     Dates: start: 20100629
  12. VITAMIN B3 [Concomitant]
     Active Substance: NIACIN
     Dosage: 1 UNK, UNK
     Dates: start: 20100629
  13. ENOXAPARIN SODIUM. [Concomitant]
     Active Substance: ENOXAPARIN SODIUM
     Dosage: 20 MG, UNK
     Dates: start: 20120217, end: 20120304
  14. NITROGLYCERIN. [Concomitant]
     Active Substance: NITROGLYCERIN
     Dosage: UNK
     Dates: start: 20101019
  15. CALCIUM CARBONATE W/COLECALCIFEROL [Concomitant]
     Active Substance: CALCIUM CARBONATE\CHOLECALCIFEROL
     Dosage: 2 DF, UNK
     Dates: start: 20140417
  16. ALFACALCIDOL [Concomitant]
     Active Substance: ALFACALCIDOL
     Dosage: 1 MUG, UNK
     Dates: start: 20100629, end: 20120221
  17. PROPAVAN [Concomitant]
     Active Substance: PROPIOMAZINE
     Dosage: 75 MG, UNK
     Dates: start: 20100625, end: 20120629
  18. DARBEPOETIN ALFA [Suspect]
     Active Substance: DARBEPOETIN ALFA
     Route: 058
  19. ASCORBIC ACID. [Concomitant]
     Active Substance: ASCORBIC ACID
     Dosage: 100 MG, UNK
     Dates: start: 20100629
  20. FOLIC ACID. [Concomitant]
     Active Substance: FOLIC ACID
     Dosage: 5 MG, UNK
     Dates: start: 20100629

REACTIONS (7)
  - Arteriovenous fistula thrombosis [Recovered/Resolved]
  - Gastrointestinal haemorrhage [Recovered/Resolved]
  - Atrial fibrillation [Recovered/Resolved with Sequelae]
  - Bacteraemia [Recovered/Resolved with Sequelae]
  - Staphylococcal bacteraemia [Recovered/Resolved]
  - Gastrointestinal ulcer [Recovered/Resolved]
  - Arteriovenous fistula site complication [Recovered/Resolved]

NARRATIVE: CASE EVENT DATE: 20120203
